FAERS Safety Report 8820613 (Version 2)
Quarter: 2012Q4

REPORT INFORMATION
  Report Type: 
  Country: CN (occurrence: CN)
  Receive Date: 20121002
  Receipt Date: 20121217
  Transmission Date: 20130627
  Serious: Yes (Other)
  Sender: FDA-Public Use
  Company Number: CN-JNJFOC-20121000091

PATIENT
  Age: 7 Year
  Sex: Male

DRUGS (2)
  1. IBUPROFEN [Suspect]
     Route: 048
  2. IBUPROFEN [Suspect]
     Indication: PYREXIA
     Route: 048
     Dates: start: 20080317, end: 20080317

REACTIONS (6)
  - Hypersensitivity [Recovered/Resolved]
  - Tinnitus [Recovered/Resolved]
  - Chest discomfort [Recovered/Resolved]
  - Erythema multiforme [Recovered/Resolved]
  - Drug hypersensitivity [None]
  - Upper respiratory tract infection [None]
